FAERS Safety Report 8303811-5 (Version None)
Quarter: 2012Q2

REPORT INFORMATION
  Report Type: 
  Country: None (occurrence: None)
  Receive Date: 20120423
  Receipt Date: 20120416
  Transmission Date: 20120825
  Serious: Yes (Hospitalization)
  Sender: FDA-Public Use
  Company Number: PHEH2012US004883

PATIENT
  Sex: Female
  Weight: 51.4 kg

DRUGS (6)
  1. NAPROXEN [Concomitant]
     Indication: PAIN
     Dosage: 200 MG, BID
     Dates: start: 20120131
  2. CALCIUM PLUS VIT D [Concomitant]
     Indication: VITAMIN D DEFICIENCY
     Route: 048
     Dates: start: 20110816
  3. FLONASE [Concomitant]
     Indication: HYPERSENSITIVITY
     Dosage: 50 UG, UNK
     Dates: start: 20090202
  4. ZYRTEC [Concomitant]
     Indication: MULTIPLE ALLERGIES
     Route: 048
     Dates: start: 20041109, end: 20120326
  5. EXJADE [Suspect]
     Indication: IRON OVERLOAD
     Dosage: 1500 MG, DAILY
     Route: 048
     Dates: start: 20080101
  6. PEN-VEE K [Concomitant]
     Indication: PNEUMOCOCCAL SEPSIS
     Dosage: 250 MG, BID
     Route: 048
     Dates: start: 20041001

REACTIONS (3)
  - SICKLE CELL ANAEMIA WITH CRISIS [None]
  - ARTHRALGIA [None]
  - PAIN IN EXTREMITY [None]
